FAERS Safety Report 18114503 (Version 5)
Quarter: 2020Q4

REPORT INFORMATION
  Report Type: Report from Study
  Country: US (occurrence: US)
  Receive Date: 20200805
  Receipt Date: 20201129
  Transmission Date: 20210113
  Serious: Yes (Hospitalization, Other)
  Sender: FDA-Public Use
  Company Number: NVSC2020US213748

PATIENT
  Sex: Female

DRUGS (1)
  1. ENTRESTO [Suspect]
     Active Substance: SACUBITRIL\VALSARTAN
     Indication: CARDIAC FAILURE
     Dosage: UNK UNK, BID
     Route: 048
     Dates: start: 2019

REACTIONS (7)
  - Cardiac failure [Unknown]
  - Panic attack [Recovering/Resolving]
  - Product dose omission issue [Unknown]
  - Illness [Unknown]
  - COVID-19 [Recovering/Resolving]
  - Anxiety [Recovering/Resolving]
  - Breast calcifications [Unknown]
